FAERS Safety Report 4490551-6 (Version None)
Quarter: 2004Q4

REPORT INFORMATION
  Report Type: 
  Country: None (occurrence: None)
  Receive Date: 20041028
  Receipt Date: 20041015
  Transmission Date: 20050328
  Serious: Yes (Hospitalization, Other)
  Sender: FDA-Public Use
  Company Number: 2004029734

PATIENT
  Age: 40 Year
  Sex: Female
  Weight: 63 kg

DRUGS (5)
  1. VFEND [Suspect]
     Indication: URINARY TRACT INFECTION FUNGAL
     Dosage: 400 MG (200 MG, 2 IN 1 D), ORAL
     Route: 048
     Dates: start: 20040326
  2. TACROLIMUS (TACROLIMUS) [Suspect]
     Indication: ILL-DEFINED DISORDER
     Dosage: 3 MG (1.5 MG, 2 IN 1 D), ORAL
     Route: 048
     Dates: start: 20040118
  3. CEFTRIAXONE [Concomitant]
  4. ZOLPIDEM TARTRATE [Concomitant]
  5. MYCOPHENOLATE (MYCOPHENOLATE MOFETIL) [Concomitant]

REACTIONS (7)
  - BLOOD CREATININE INCREASED [None]
  - CANDIDIASIS [None]
  - CONVULSION [None]
  - DRUG INTERACTION [None]
  - ENCEPHALITIS HERPES [None]
  - OVERDOSE [None]
  - URINARY TRACT INFECTION FUNGAL [None]
